FAERS Safety Report 4864270-8 (Version None)
Quarter: 2005Q4

REPORT INFORMATION
  Report Type: 
  Country: None (occurrence: None)
  Receive Date: 20051222
  Receipt Date: 20051129
  Transmission Date: 20060501
  Serious: Yes (Hospitalization)
  Sender: FDA-Public Use
  Company Number: US-JNJFOC-20051106388

PATIENT
  Sex: Female
  Weight: 78.47 kg

DRUGS (18)
  1. ET 743 [Suspect]
     Indication: OVARIAN CANCER
     Route: 042
  2. DOXIL [Suspect]
     Indication: OVARIAN CANCER
     Route: 042
  3. MULTI-VITAMIN [Concomitant]
     Route: 048
  4. MULTI-VITAMIN [Concomitant]
     Route: 048
  5. MULTI-VITAMIN [Concomitant]
     Route: 048
  6. MULTI-VITAMIN [Concomitant]
     Route: 048
  7. MULTI-VITAMIN [Concomitant]
     Route: 048
  8. MULTI-VITAMIN [Concomitant]
     Route: 048
  9. MULTI-VITAMIN [Concomitant]
     Route: 048
  10. MULTI-VITAMIN [Concomitant]
     Indication: ROUTINE HEALTH MAINTENANCE
     Route: 048
  11. METHOCARBAMOL [Concomitant]
     Indication: INTERVERTEBRAL DISC COMPRESSION
     Route: 048
  12. TYLENOL SINUS [Concomitant]
     Route: 048
  13. TYLENOL SINUS [Concomitant]
     Route: 048
  14. ANZEMET [Concomitant]
     Route: 042
  15. ANZEMET [Concomitant]
     Indication: PROPHYLACTIC CHEMOTHERAPY
     Route: 042
  16. ZOFRAN [Concomitant]
     Route: 048
  17. SENOKOT [Concomitant]
     Indication: CONSTIPATION PROPHYLAXIS
     Route: 048
  18. DUCOLAX SUPPOSITORY [Concomitant]
     Route: 054

REACTIONS (1)
  - PULMONARY EMBOLISM [None]
